FAERS Safety Report 9399205 (Version 1)
Quarter: 2013Q3

REPORT INFORMATION
  Report Type: Spontaneous
  Country: TR (occurrence: TR)
  Receive Date: 20130715
  Receipt Date: 20130715
  Transmission Date: 20140515
  Serious: Yes (Other)
  Sender: FDA-Public Use
  Company Number: TR-ROCHE-1247749

PATIENT
  Age: 38 Year
  Sex: Male

DRUGS (1)
  1. NAPROXEN SODIUM [Suspect]
     Indication: HYPERTHERMIA
     Route: 048

REACTIONS (3)
  - Hypothermia [Recovered/Resolved]
  - Hypotension [Unknown]
  - Bradycardia [Unknown]
